FAERS Safety Report 8574540-8 (Version None)
Quarter: 2012Q3

REPORT INFORMATION
  Report Type: 
  Country: None (occurrence: None)
  Receive Date: 20120806
  Receipt Date: 20120730
  Transmission Date: 20120928
  Serious: Yes (Hospitalization, Other)
  Sender: FDA-Public Use
  Company Number: US-ABBOTT-12P-163-0962730-00

PATIENT
  Sex: Female
  Weight: 63.56 kg

DRUGS (11)
  1. CREON [Suspect]
     Indication: PANCREATIC INSUFFICIENCY
     Dates: start: 20110101, end: 20110101
  2. OMEGA [Concomitant]
     Indication: SUPPLEMENTATION THERAPY
  3. PERCOCET [Concomitant]
     Indication: ABDOMINAL PAIN UPPER
  4. VICODIN [Concomitant]
     Indication: PRODUCT USED FOR UNKNOWN INDICATION
     Dosage: 7.5/750MG AS NEEDED
  5. VITAMIN D [Concomitant]
     Indication: PRODUCT USED FOR UNKNOWN INDICATION
  6. MULTI-VITAMIN [Concomitant]
     Indication: PRODUCT USED FOR UNKNOWN INDICATION
  7. PRILOSEC [Concomitant]
     Indication: PRODUCT USED FOR UNKNOWN INDICATION
  8. VITAMIN B-12 [Concomitant]
     Indication: PRODUCT USED FOR UNKNOWN INDICATION
  9. CREON [Suspect]
     Indication: PANCREATIC INSUFFICIENCY
     Dosage: CREON 6 OR 12 WITH MEAL OR SNACK.
     Dates: start: 20110304, end: 20120601
  10. COREG [Concomitant]
     Indication: HYPERTENSION
  11. CATAPRESS PATCH [Concomitant]
     Indication: HYPERTENSION

REACTIONS (13)
  - PAIN [None]
  - HYPERTENSION [None]
  - MYALGIA [None]
  - PRESYNCOPE [None]
  - DIZZINESS [None]
  - NAUSEA [None]
  - CONSTIPATION [None]
  - DEHYDRATION [None]
  - HEADACHE [None]
  - DYSPNOEA [None]
  - VOMITING [None]
  - VERTIGO [None]
  - PYREXIA [None]
